FAERS Safety Report 16862634 (Version 1)
Quarter: 2019Q3

REPORT INFORMATION
  Report Type: Spontaneous
  Country: GB (occurrence: GB)
  Receive Date: 20190927
  Receipt Date: 20190927
  Transmission Date: 20191005
  Serious: Yes (Other)
  Sender: FDA-Public Use
  Company Number: GB-MYLANLABS-2019M1089549

PATIENT
  Sex: Male

DRUGS (1)
  1. CLOZARIL [Suspect]
     Active Substance: CLOZAPINE
     Indication: SCHIZOPHRENIA
     Dosage: 650 MILLIGRAM, QD
     Route: 048
     Dates: start: 20190726

REACTIONS (2)
  - Antipsychotic drug level decreased [Unknown]
  - Schizophrenia [Unknown]

NARRATIVE: CASE EVENT DATE: 2019
